FAERS Safety Report 8601171-3 (Version None)
Quarter: 2012Q3

REPORT INFORMATION
  Report Type: 
  Country: None (occurrence: None)
  Receive Date: 20120817
  Receipt Date: 20120815
  Transmission Date: 20120928
  Serious: Yes (Death, Hospitalization, Disabling, Other)
  Sender: FDA-Public Use
  Company Number: PHHY2012CA067640

PATIENT
  Sex: Male

DRUGS (5)
  1. ZOLEDRONOC ACID [Suspect]
     Route: 042
     Dates: start: 20100623
  2. LIPIDIL [Concomitant]
  3. ZOLEDRONOC ACID [Suspect]
     Indication: OSTEOPOROSIS
     Route: 042
     Dates: start: 20090626
  4. ZOLEDRONOC ACID [Suspect]
     Route: 042
     Dates: start: 20110623
  5. METFORMIN HCL [Concomitant]
     Dosage: UNK UKN, BID

REACTIONS (3)
  - PROSTATE CANCER [None]
  - DEMENTIA [None]
  - HIP FRACTURE [None]
